FAERS Safety Report 11875664 (Version 3)
Quarter: 2016Q1

REPORT INFORMATION
  Report Type: Report from Study
  Country: US (occurrence: US)
  Receive Date: 20151229
  Receipt Date: 20160211
  Transmission Date: 20160526
  Serious: Yes (Hospitalization, Other)
  Sender: FDA-Public Use
  Company Number: US-BAYER-2015-474673

PATIENT
  Age: 75 Year
  Sex: Male

DRUGS (3)
  1. NEXAVAR [Suspect]
     Active Substance: SORAFENIB
     Indication: HEPATOCELLULAR CARCINOMA
     Dosage: 200 MG, QD (ONCE DAILY AT 2 PM)
     Route: 048
  2. NEXAVAR [Suspect]
     Active Substance: SORAFENIB
     Indication: HEPATOCELLULAR CARCINOMA
     Dosage: 400 MG, QD ON EMPTY STOMACH
     Route: 048
     Dates: end: 201601
  3. NEXAVAR [Suspect]
     Active Substance: SORAFENIB
     Indication: HEPATOCELLULAR CARCINOMA
     Dosage: 400 MG, QD
     Route: 048
     Dates: start: 20151117

REACTIONS (17)
  - Hepatocellular carcinoma [None]
  - Constipation [None]
  - Gastric varices haemorrhage [None]
  - Gastric ulcer haemorrhage [None]
  - Dysphonia [None]
  - Somnolence [None]
  - Abdominal pain [None]
  - Pre-existing condition improved [Not Recovered/Not Resolved]
  - Abdominal pain upper [Not Recovered/Not Resolved]
  - Decreased appetite [None]
  - Nausea [Not Recovered/Not Resolved]
  - Pain in extremity [None]
  - Dysgeusia [None]
  - Oesophageal varices haemorrhage [None]
  - Pain [None]
  - Faeces discoloured [None]
  - Fatigue [None]

NARRATIVE: CASE EVENT DATE: 2015
